FAERS Safety Report 13021965 (Version 3)
Quarter: 2017Q1

REPORT INFORMATION
  Report Type: Spontaneous
  Country: BR (occurrence: BR)
  Receive Date: 20161213
  Receipt Date: 20170313
  Transmission Date: 20170428
  Serious: Yes (Other)
  Sender: FDA-Public Use
  Company Number: BR-ROCHE-1866150

PATIENT
  Age: 49 Year

DRUGS (5)
  1. TARCEVA [Suspect]
     Active Substance: ERLOTINIB HYDROCHLORIDE
     Indication: LUNG ADENOCARCINOMA
     Route: 065
  2. AVASTIN [Suspect]
     Active Substance: BEVACIZUMAB
     Indication: LUNG ADENOCARCINOMA
     Route: 065
  3. PACLITAXEL. [Suspect]
     Active Substance: PACLITAXEL
     Indication: LUNG ADENOCARCINOMA
     Route: 065
  4. PLATINUM [Suspect]
     Active Substance: PLATINUM
     Indication: LUNG ADENOCARCINOMA
     Route: 065
  5. AVASTIN [Suspect]
     Active Substance: BEVACIZUMAB
     Route: 065

REACTIONS (4)
  - Pleural effusion [Unknown]
  - Asthenia [Unknown]
  - Cough [Unknown]
  - Chest pain [Unknown]
